FAERS Safety Report 19585119 (Version 1)
Quarter: 2021Q3

REPORT INFORMATION
  Report Type: Spontaneous
  Country: US (occurrence: US)
  Receive Date: 20210720
  Receipt Date: 20210720
  Transmission Date: 20211014
  Serious: No
  Sender: FDA-Public Use
  Company Number: US-ROCHE-2656066

PATIENT
  Sex: Male

DRUGS (7)
  1. TECENTRIQ [Suspect]
     Active Substance: ATEZOLIZUMAB
     Indication: METASTATIC CARCINOMA OF THE BLADDER
  2. CARBOPLATIN. [Concomitant]
     Active Substance: CARBOPLATIN
     Indication: SMALL CELL LUNG CANCER
     Route: 065
     Dates: start: 20200425
  3. ETOPOSIDE. [Concomitant]
     Active Substance: ETOPOSIDE
     Indication: SMALL CELL LUNG CANCER
     Route: 065
     Dates: start: 20200425
  4. CARBOPLATIN. [Concomitant]
     Active Substance: CARBOPLATIN
     Indication: METASTATIC CARCINOMA OF THE BLADDER
  5. ETOPOSIDE. [Concomitant]
     Active Substance: ETOPOSIDE
     Indication: METASTATIC CARCINOMA OF THE BLADDER
  6. TRULICITY [Concomitant]
     Active Substance: DULAGLUTIDE
     Dosage: ONGOING:NO
  7. TECENTRIQ [Suspect]
     Active Substance: ATEZOLIZUMAB
     Indication: SMALL CELL LUNG CANCER
     Dosage: ONGOING:YES
     Route: 042
     Dates: start: 20200425

REACTIONS (1)
  - Periorbital oedema [Not Recovered/Not Resolved]
